FAERS Safety Report 7388348-2 (Version None)
Quarter: 2011Q1

REPORT INFORMATION
  Report Type: 
  Country: None (occurrence: None)
  Receive Date: 20110324
  Receipt Date: 20110309
  Transmission Date: 20110831
  Serious: Yes (Hospitalization)
  Sender: FDA-Public Use
  Company Number: 2011DE0033

PATIENT
  Age: 63 Year
  Sex: Male

DRUGS (4)
  1. PREDNISOLONE [Concomitant]
  2. ANAKINRA (ANAKINRA) [Suspect]
     Indication: RHEUMATOID ARTHRITIS
     Dosage: (100 MG,1 IN 1 D)
     Dates: start: 20030801, end: 20090824
  3. ENALAPRIL MALEATE [Concomitant]
  4. LANTAREL (METHOTREXATE) [Suspect]
     Indication: RHEUMATOID ARTHRITIS
     Dosage: (15 MG,1 IN 1 D)
     Dates: start: 19870601, end: 20090501

REACTIONS (10)
  - GASTROINTESTINAL INFECTION [None]
  - AGRANULOCYTOSIS [None]
  - PAIN IN EXTREMITY [None]
  - ARTHRALGIA [None]
  - HEADACHE [None]
  - WEIGHT DECREASED [None]
  - MALAISE [None]
  - HEPATIC ENZYME INCREASED [None]
  - DIARRHOEA [None]
  - VENOUS THROMBOSIS [None]
